FAERS Safety Report 7128892-6 (Version None)
Quarter: 2010Q4

REPORT INFORMATION
  Report Type: 
  Country: None (occurrence: None)
  Receive Date: 20101130
  Receipt Date: 20101119
  Transmission Date: 20110411
  Serious: Yes (Other)
  Sender: FDA-Public Use
  Company Number: A0870947A

PATIENT
  Sex: Female

DRUGS (3)
  1. TYKERB [Suspect]
     Dosage: 1250MG PER DAY
     Route: 048
     Dates: start: 20100521, end: 20101020
  2. XELODA [Concomitant]
     Route: 065
  3. MICARDIS [Concomitant]
     Route: 065

REACTIONS (3)
  - BURNING SENSATION [None]
  - NEOPLASM PROGRESSION [None]
  - SKIN DISCOLOURATION [None]
